FAERS Safety Report 9283140 (Version 1)
Quarter: 2013Q2

REPORT INFORMATION
  Report Type: Spontaneous
  Country: US (occurrence: US)
  Receive Date: 20130510
  Receipt Date: 20130510
  Transmission Date: 20140414
  Serious: No
  Sender: FDA-Public Use
  Company Number: US-GLAXOSMITHKLINE-A0982844A

PATIENT
  Age: 51 Year
  Sex: Female

DRUGS (1)
  1. TYKERB [Suspect]
     Indication: PRODUCT USED FOR UNKNOWN INDICATION
     Dosage: 1250MG PER DAY
     Route: 065
     Dates: start: 20120618, end: 20120710

REACTIONS (4)
  - Dizziness [Unknown]
  - Headache [Unknown]
  - Nausea [Unknown]
  - Dermatitis acneiform [Unknown]
